FAERS Safety Report 15538001 (Version 1)
Quarter: 2018Q4

REPORT INFORMATION
  Report Type: Spontaneous
  Country: JP (occurrence: JP)
  Receive Date: 20181022
  Receipt Date: 20181022
  Transmission Date: 20190205
  Serious: Yes (Hospitalization)
  Sender: FDA-Public Use
  Company Number: JP-JNJFOC-20180720342

PATIENT
  Age: 84 Year
  Sex: Female
  Weight: 45 kg

DRUGS (9)
  1. VERAPAMIL HYDROCHLORIDE. [Concomitant]
     Active Substance: VERAPAMIL HYDROCHLORIDE
     Indication: ARRHYTHMIA
     Route: 048
     Dates: start: 200404
  2. XARELTO [Suspect]
     Active Substance: RIVAROXABAN
     Indication: ATRIAL FIBRILLATION
     Route: 048
     Dates: start: 20150822, end: 201512
  3. APIXABAN [Suspect]
     Active Substance: APIXABAN
     Indication: ATRIAL FIBRILLATION
     Route: 048
     Dates: start: 201601, end: 20170423
  4. APIXABAN [Suspect]
     Active Substance: APIXABAN
     Indication: CEREBRAL INFARCTION
     Route: 048
     Dates: start: 201601, end: 20170423
  5. DOPACOL [Concomitant]
     Active Substance: CARBIDOPA\LEVODOPA
     Indication: VASCULAR PARKINSONISM
     Route: 048
     Dates: start: 201504
  6. XARELTO [Suspect]
     Active Substance: RIVAROXABAN
     Indication: CEREBRAL INFARCTION
     Route: 048
     Dates: start: 20150822, end: 201512
  7. DOPS [Concomitant]
     Active Substance: DROXIDOPA
     Indication: VASCULAR PARKINSONISM
     Route: 048
     Dates: start: 201601
  8. AZOSEMIDE [Concomitant]
     Active Substance: AZOSEMIDE
     Indication: CARDIAC FAILURE CHRONIC
     Route: 048
     Dates: start: 200912
  9. REMINYL [Concomitant]
     Active Substance: GALANTAMINE
     Indication: VASCULAR DEMENTIA
     Route: 048
     Dates: start: 201601

REACTIONS (2)
  - Subcutaneous haematoma [Unknown]
  - Thrombosis [Recovering/Resolving]

NARRATIVE: CASE EVENT DATE: 20150917
